FAERS Safety Report 9375759 (Version 2)
Quarter: 2013Q3

REPORT INFORMATION
  Report Type: Spontaneous
  Country: GB (occurrence: GB)
  Receive Date: 20130628
  Receipt Date: 20130730
  Transmission Date: 20140515
  Serious: Yes (Hospitalization)
  Sender: FDA-Public Use
  Company Number: GB-BAXTER-2013BAX023376

PATIENT
  Age: 67 Year
  Sex: Female

DRUGS (16)
  1. CYCLOPHOSPHAMIDE INJECTION 1G [Suspect]
     Indication: PRODUCT USED FOR UNKNOWN INDICATION
     Dosage: 1300 UNITS NOT REPORTED
     Route: 065
  2. CYCLOPHOSPHAMIDE INJECTION 1G [Suspect]
     Dosage: 1300 UNITS NOT REPORTED
     Route: 065
     Dates: start: 20130529
  3. BORTEZOMIB [Suspect]
     Indication: PRODUCT USED FOR UNKNOWN INDICATION
     Route: 065
  4. DOXORUBICIN [Suspect]
     Indication: PRODUCT USED FOR UNKNOWN INDICATION
     Route: 042
  5. DOXORUBICIN [Suspect]
     Route: 065
  6. PREDNISOLONE [Suspect]
     Indication: PRODUCT USED FOR UNKNOWN INDICATION
     Dosage: 100 UNITS NOT REPORTED
     Route: 065
  7. PREDNISOLONE [Suspect]
     Dosage: 100 UNITS NOT REPORTED
     Route: 065
     Dates: start: 20130530
  8. RITUXIMAB [Suspect]
     Indication: PRODUCT USED FOR UNKNOWN INDICATION
     Dosage: 645 UNITS NOT REPORTED
     Route: 065
     Dates: start: 20130529
  9. VINCRISTINE [Suspect]
     Indication: PRODUCT USED FOR UNKNOWN INDICATION
     Dosage: 2 UNITS NOT REPORTED
     Route: 065
  10. VINCRISTINE [Suspect]
     Dosage: 2 UNITS NOT REPORTED
     Route: 065
     Dates: start: 20130529
  11. ACYCLOVIR [Concomitant]
     Indication: PRODUCT USED FOR UNKNOWN INDICATION
     Route: 048
     Dates: start: 20130524
  12. ALLOPURINOL [Concomitant]
     Indication: PRODUCT USED FOR UNKNOWN INDICATION
     Route: 048
     Dates: start: 20130525
  13. CO-TRIMOXAZOLE [Concomitant]
     Indication: PRODUCT USED FOR UNKNOWN INDICATION
     Route: 048
     Dates: start: 20130529
  14. DOMPERIDONE [Concomitant]
     Indication: PRODUCT USED FOR UNKNOWN INDICATION
     Route: 048
     Dates: start: 20130528
  15. FLUCONAZOLE [Concomitant]
     Indication: PRODUCT USED FOR UNKNOWN INDICATION
     Route: 048
     Dates: start: 20130524
  16. OMEPRAZOLE [Concomitant]
     Indication: PRODUCT USED FOR UNKNOWN INDICATION
     Route: 048
     Dates: start: 20130518

REACTIONS (1)
  - Urinary tract infection [Not Recovered/Not Resolved]
